FAERS Safety Report 18650258 (Version 1)
Quarter: 2020Q4

REPORT INFORMATION
  Report Type: Spontaneous
  Country: US (occurrence: US)
  Receive Date: 20201222
  Receipt Date: 20201222
  Transmission Date: 20210114
  Serious: Yes (Other)
  Sender: FDA-Public Use
  Company Number: US-ELI_LILLY_AND_COMPANY-US202012009925

PATIENT
  Sex: Male

DRUGS (1)
  1. ZYPREXA [Suspect]
     Active Substance: OLANZAPINE
     Indication: ALCOHOL REHABILITATION
     Dosage: 10 MG, TID
     Route: 065

REACTIONS (6)
  - Affect lability [Unknown]
  - Inappropriate schedule of product administration [Unknown]
  - Cerebrovascular accident [Not Recovered/Not Resolved]
  - Hallucination [Recovered/Resolved]
  - Cerebrovascular accident [Not Recovered/Not Resolved]
  - Off label use [Unknown]

NARRATIVE: CASE EVENT DATE: 1999
